FAERS Safety Report 9374561 (Version 3)
Quarter: 2013Q4

REPORT INFORMATION
  Report Type: Report from Study
  Country: CA (occurrence: CA)
  Receive Date: 20130628
  Receipt Date: 20131212
  Transmission Date: 20140711
  Serious: Yes (Hospitalization)
  Sender: FDA-Public Use
  Company Number: CA-EISAI INC-E7389-03936-CLI-CA

PATIENT
  Age: 62 Year
  Sex: Female
  Weight: 51 kg

DRUGS (2)
  1. E7389 (BOLD) [Suspect]
     Indication: BREAST CANCER METASTATIC
     Route: 041
     Dates: start: 20120628
  2. AREDIA [Concomitant]
     Indication: METASTASES TO BONE
     Route: 042
     Dates: start: 20120202

REACTIONS (1)
  - Metastases to central nervous system [Recovered/Resolved with Sequelae]
